FAERS Safety Report 26058078 (Version 1)
Quarter: 2025Q4

REPORT INFORMATION
  Report Type: Spontaneous
  Country: US (occurrence: US)
  Receive Date: 20251118
  Receipt Date: 20251118
  Transmission Date: 20260118
  Serious: No
  Sender: DIFGEN PHARMACEUTICALS LLC
  Company Number: US-Difgen-012296

PATIENT

DRUGS (3)
  1. GABAPENTIN [Concomitant]
     Active Substance: GABAPENTIN
     Indication: Product used for unknown indication
     Route: 065
  2. CYMBALTA [Concomitant]
     Active Substance: DULOXETINE HYDROCHLORIDE
     Indication: Product used for unknown indication
     Route: 065
  3. BUPRENORPHINE [Suspect]
     Active Substance: BUPRENORPHINE
     Indication: Pain
     Route: 062
     Dates: start: 20251024, end: 20251025

REACTIONS (6)
  - Application site scab [Not Recovered/Not Resolved]
  - Application site erosion [Unknown]
  - Application site pain [Unknown]
  - Drug ineffective [Unknown]
  - Application site vesicles [Unknown]
  - Application site burn [Unknown]

NARRATIVE: CASE EVENT DATE: 20251001
